FAERS Safety Report 6204826-3 (Version None)
Quarter: 2009Q2

REPORT INFORMATION
  Report Type: 
  Country: None (occurrence: None)
  Receive Date: 20090527
  Receipt Date: 20090527
  Transmission Date: 20091009
  Serious: Yes (Other)
  Sender: FDA-Public Use
  Company Number: US-PFIZER INC-2008014219

PATIENT
  Sex: Female
  Weight: 88.5 kg

DRUGS (11)
  1. LYRICA [Suspect]
     Indication: FIBROMYALGIA
     Dates: start: 20071001
  2. LYRICA [Interacting]
     Indication: NEURALGIA
     Dosage: 200 MG, 3X/DAY
     Dates: start: 20090101
  3. KLONOPIN [Interacting]
     Indication: POST-TRAUMATIC STRESS DISORDER
     Dates: start: 19930101
  4. SEROQUEL [Interacting]
     Indication: MOOD SWINGS
     Dates: start: 19970101
  5. REMERON [Interacting]
     Indication: DEPRESSION
     Dates: start: 20010101
  6. CYMBALTA [Interacting]
     Indication: DEPRESSION
     Dates: start: 20070801
  7. AMBIEN [Interacting]
     Indication: INSOMNIA
     Dates: start: 20071201
  8. GLIPIZIDE [Concomitant]
  9. LIPITOR [Concomitant]
  10. DETROL LA [Concomitant]
  11. NEXIUM [Concomitant]

REACTIONS (8)
  - DIABETIC NEUROPATHY [None]
  - DRUG INEFFECTIVE [None]
  - DRUG INTERACTION [None]
  - FATIGUE [None]
  - FIBROMYALGIA [None]
  - HALLUCINATION [None]
  - MIDDLE INSOMNIA [None]
  - SOMNOLENCE [None]
